FAERS Safety Report 17547162 (Version 1)
Quarter: 2020Q1

REPORT INFORMATION
  Report Type: Report from Study
  Country: US (occurrence: US)
  Receive Date: 20200316
  Receipt Date: 20200316
  Transmission Date: 20200409
  Serious: Yes (Other)
  Sender: FDA-Public Use
  Company Number: US-BAUSCH-BL-2020-007893

PATIENT
  Age: 53 Year
  Sex: Male

DRUGS (3)
  1. LACTULOSE. [Suspect]
     Active Substance: LACTULOSE
     Dosage: THERAPY WAS RESUMED
     Route: 048
     Dates: start: 2020
  2. XIFAXAN [Suspect]
     Active Substance: RIFAXIMIN
     Indication: HEPATIC ENCEPHALOPATHY
     Dosage: 1 TABLET TWICE DAILY
     Route: 048
     Dates: start: 201909
  3. LACTULOSE. [Suspect]
     Active Substance: LACTULOSE
     Indication: PRODUCT USED FOR UNKNOWN INDICATION
     Route: 048
     Dates: end: 202001

REACTIONS (5)
  - Localised oedema [Not Recovered/Not Resolved]
  - Mobility decreased [Not Recovered/Not Resolved]
  - Ammonia increased [Unknown]
  - Weight increased [Not Recovered/Not Resolved]
  - Pain in extremity [Not Recovered/Not Resolved]

NARRATIVE: CASE EVENT DATE: 202002
